FAERS Safety Report 21263872 (Version 1)
Quarter: 2022Q3

REPORT INFORMATION
  Report Type: Spontaneous
  Country: CA (occurrence: CA)
  Receive Date: 20220829
  Receipt Date: 20220829
  Transmission Date: 20221027
  Serious: Yes (Hospitalization)
  Sender: FDA-Public Use
  Company Number: CA-TEVA-2022-CA-2067177

PATIENT
  Age: 6 Decade
  Sex: Male

DRUGS (5)
  1. FLUVOXAMINE [Interacting]
     Active Substance: FLUVOXAMINE
     Indication: Schizoaffective disorder bipolar type
     Route: 065
  2. CLOZAPINE [Suspect]
     Active Substance: CLOZAPINE
     Indication: Schizoaffective disorder bipolar type
     Dosage: 250 MILLIGRAM DAILY;
     Route: 065
  3. CLOZAPINE [Suspect]
     Active Substance: CLOZAPINE
     Route: 065
  4. BUPROPION [Concomitant]
     Active Substance: BUPROPION
     Indication: Schizoaffective disorder bipolar type
     Route: 065
  5. SERTRALINE [Concomitant]
     Active Substance: SERTRALINE HYDROCHLORIDE
     Indication: Schizoaffective disorder bipolar type
     Route: 065

REACTIONS (5)
  - Enuresis [Unknown]
  - Orthostatic hypotension [Unknown]
  - Sedation [Unknown]
  - Drug level increased [Unknown]
  - Labelled drug-drug interaction medication error [Unknown]
